FAERS Safety Report 25058735 (Version 1)
Quarter: 2025Q1

REPORT INFORMATION
  Report Type: Spontaneous
  Country: US (occurrence: US)
  Receive Date: 20250310
  Receipt Date: 20250310
  Transmission Date: 20250409
  Serious: No
  Sender: TAKEDA
  Company Number: US-TAKEDA-2025TUS023796

PATIENT
  Sex: Female

DRUGS (1)
  1. GAMMAGARD LIQUID [Suspect]
     Active Substance: HUMAN IMMUNOGLOBULIN G
     Indication: Lichen myxoedematosus

REACTIONS (2)
  - No adverse event [Unknown]
  - Product prescribing issue [Unknown]
